FAERS Safety Report 16898492 (Version 1)
Quarter: 2019Q4

REPORT INFORMATION
  Report Type: Spontaneous
  Country: US (occurrence: None)
  Receive Date: 20191004
  Receipt Date: 20191004
  Transmission Date: 20200122
  Serious: Yes (Hospitalization)
  Sender: FDA-Public Use
  Company Number: GS19101325

PATIENT
  Age: 66 Year
  Sex: Female

DRUGS (1)
  1. METAMUCIL THERAPY FOR REGULARITY [Suspect]
     Active Substance: PSYLLIUM HUSK
     Indication: NUTRITIONAL SUPPLEMENTATION
     Dosage: 1 CAPSULE 2 TO 3 TIMES A WEEK, EVERY OTHER DAY, ORAL
     Dates: end: 201909

REACTIONS (9)
  - Dehydration [None]
  - Throat tightness [None]
  - Malaise [None]
  - Product administration error [None]
  - Constipation [None]
  - Wrong technique in product usage process [None]
  - Dysphagia [None]
  - Choking sensation [None]
  - Abdominal distension [None]

NARRATIVE: CASE EVENT DATE: 201909
